FAERS Safety Report 5077777-8 (Version None)
Quarter: 2006Q3

REPORT INFORMATION
  Report Type: 
  Country: None (occurrence: None)
  Receive Date: 20060804
  Receipt Date: 20060724
  Transmission Date: 20061208
  Serious: Yes (Death, Hospitalization)
  Sender: FDA-Public Use
  Company Number: HQWYE023127APR06

PATIENT
  Age: 7 Year
  Sex: Female

DRUGS (3)
  1. PHENERGAN [Suspect]
     Indication: GASTROENTERITIS VIRAL
     Dosage: UNKNOWN ADULT DOSE   RECTAL
     Route: 054
     Dates: start: 19620401, end: 19620401
  2. PHENERGAN [Suspect]
     Indication: VOMITING
     Dosage: UNKNOWN ADULT DOSE   RECTAL
     Route: 054
     Dates: start: 19620401, end: 19620401
  3. CHLOROMYCETIN (CHLORAMPHENICOL) [Concomitant]

REACTIONS (9)
  - ACCIDENTAL OVERDOSE [None]
  - COMA [None]
  - CONVULSION [None]
  - CYANOSIS [None]
  - DRUG PRESCRIBING ERROR [None]
  - DYSPNOEA [None]
  - LOSS OF CONSCIOUSNESS [None]
  - RESPIRATORY ARREST [None]
  - RESPIRATORY DISTRESS [None]
